FAERS Safety Report 11758198 (Version 1)
Quarter: 2015Q4

REPORT INFORMATION
  Report Type: Spontaneous
  Country: HK (occurrence: HK)
  Receive Date: 20151120
  Receipt Date: 20151120
  Transmission Date: 20160304
  Serious: Yes (Hospitalization)
  Sender: FDA-Public Use
  Company Number: HK-ASTRAZENECA-2015SF05747

PATIENT

DRUGS (19)
  1. ENTECAVIR. [Concomitant]
     Active Substance: ENTECAVIR
  2. AMBROXOL HCL [Concomitant]
  3. PROCHLORPERAZINE MALEATE. [Concomitant]
     Active Substance: PROCHLORPERAZINE MALEATE
  4. GENTEAL EYE GEL [Concomitant]
  5. CARBOXYMETHYLCELLULOSE [Concomitant]
     Active Substance: CARBOXYMETHYLCELLULOSE
  6. LANSOPRAZOLE. [Concomitant]
     Active Substance: LANSOPRAZOLE
  7. DEXAMETHASONE. [Concomitant]
     Active Substance: DEXAMETHASONE
  8. SODIUM CHLORIDE. [Concomitant]
     Active Substance: SODIUM CHLORIDE
  9. LACTULOSE. [Concomitant]
     Active Substance: LACTULOSE
  10. FLUDROCORTISONE ACETATE. [Concomitant]
     Active Substance: FLUDROCORTISONE ACETATE
  11. ACETYLCYSTEINE. [Concomitant]
     Active Substance: ACETYLCYSTEINE
  12. HYPROMELLOSE [Concomitant]
     Active Substance: HYPROMELLOSES
  13. CHLORAMPHENICOL [Concomitant]
     Active Substance: CHLORAMPHENICOL
  14. WHOLE BRAIN RADIOTHERAPY [Concomitant]
     Dosage: TOTAL 30GYS TO LATERAL OPPOSING CRANIAL
  15. PARACETAMOL [Concomitant]
     Active Substance: ACETAMINOPHEN
  16. AUGMENTIN [Concomitant]
     Active Substance: AMOXICILLIN\CLAVULANATE POTASSIUM
  17. TAGRISSO [Suspect]
     Active Substance: OSIMERTINIB
     Indication: NON-SMALL CELL LUNG CANCER
     Route: 048
     Dates: start: 20150918
  18. LEVOFLOXACIN. [Concomitant]
     Active Substance: LEVOFLOXACIN
  19. DURATEARS EYE OINTMENT [Concomitant]

REACTIONS (1)
  - Dysphagia [Unknown]
